FAERS Safety Report 9178207 (Version 1)
Quarter: 2012Q4

REPORT INFORMATION
  Report Type: 
  Country: US (occurrence: US)
  Receive Date: 20121025
  Receipt Date: 20121025
  Transmission Date: 20130627
  Serious: Yes (Other)
  Sender: FDA-Public Use
  Company Number: US-RB-045963-12

PATIENT
  Age: 0 None
  Sex: Male

DRUGS (4)
  1. SUBUTEX [Suspect]
     Indication: DRUG DETOXIFICATION
     Route: 064
     Dates: start: 201102, end: 2011
  2. PRENATAL VITAMINS [Suspect]
     Indication: PREGNANCY
     Dosage: Dosing details unknown
     Route: 064
  3. LEXAPRO [Suspect]
     Indication: DEPRESSION
     Dosage: Before bed time
     Route: 064
     Dates: start: 201103, end: 2011
  4. NICOTINE [Suspect]
     Indication: TOBACCO USER
     Dosage: Dosing details unknown
     Route: 064
     Dates: start: 20101113, end: 20110827

REACTIONS (10)
  - Foetal exposure during pregnancy [Recovered/Resolved]
  - Premature baby [Recovered/Resolved]
  - Low birth weight baby [Recovered/Resolved]
  - Tremor neonatal [Unknown]
  - Restlessness [Unknown]
  - Rash neonatal [Unknown]
  - Dacryostenosis congenital [Recovered/Resolved]
  - Vomiting neonatal [Recovered/Resolved]
  - Gastrooesophageal reflux disease [Recovered/Resolved]
  - Weight decrease neonatal [Recovered/Resolved]
